FAERS Safety Report 5813673-3 (Version None)
Quarter: 2008Q3

REPORT INFORMATION
  Report Type: 
  Country: None (occurrence: None)
  Receive Date: 20080717
  Receipt Date: 20080709
  Transmission Date: 20090109
  Serious: Yes (Hospitalization)
  Sender: FDA-Public Use
  Company Number: B0528672A

PATIENT
  Age: 66 Year
  Sex: Female

DRUGS (4)
  1. VENTOLIN [Suspect]
     Dosage: 2PUFF THREE TIMES PER DAY
     Route: 055
  2. CORTANCYL [Suspect]
     Dosage: 20MG PER DAY
     Route: 048
  3. THEOSTAT [Suspect]
     Dosage: 300MG TWICE PER DAY
     Route: 048
     Dates: end: 20080526
  4. SYMBICORT [Suspect]
     Dosage: 2PUFF TWICE PER DAY
     Route: 055

REACTIONS (5)
  - CONFUSIONAL STATE [None]
  - DELIRIUM [None]
  - HYPOMANIA [None]
  - LOGORRHOEA [None]
  - PSYCHOMOTOR HYPERACTIVITY [None]
